FAERS Safety Report 8582557-2 (Version None)
Quarter: 2012Q3

REPORT INFORMATION
  Report Type: 
  Country: None (occurrence: None)
  Receive Date: 20120809
  Receipt Date: 20120801
  Transmission Date: 20120928
  Serious: Yes (Hospitalization)
  Sender: FDA-Public Use
  Company Number: US-ROCHE-1096061

PATIENT
  Sex: Female
  Weight: 74 kg

DRUGS (10)
  1. AVASTIN [Suspect]
     Indication: BREAST CANCER
     Route: 042
     Dates: start: 20111108
  2. SERTRALINE HYDROCHLORIDE [Concomitant]
     Indication: DEPRESSION
  3. AMLODIPINE [Concomitant]
     Indication: HYPERTENSION
  4. ALBUTEROL [Concomitant]
     Indication: ASTHMA
     Dosage: PM
  5. HYDROCHLOROTHIAZIDE [Concomitant]
     Indication: BLOOD PRESSURE
  6. AROMASIN [Concomitant]
     Indication: BREAST CANCER
  7. FLUTICASONE PROPIONATE [Concomitant]
     Indication: ASTHMA
     Dosage: 1 PUFF 2X DAILY
  8. ATIVAN [Concomitant]
     Indication: ANXIETY
     Dosage: 1 MG AT BEDTIME
  9. LISINOPRIL [Concomitant]
     Indication: HYPERTENSION
  10. AMBIEN [Concomitant]
     Indication: INSOMNIA
     Dosage: 10 MG QHE

REACTIONS (4)
  - HEADACHE [None]
  - CHEST DISCOMFORT [None]
  - PARAESTHESIA [None]
  - DIZZINESS [None]
